FAERS Safety Report 15473072 (Version 4)
Quarter: 2019Q3

REPORT INFORMATION
  Report Type: Report from Study
  Country: JP (occurrence: JP)
  Receive Date: 20181008
  Receipt Date: 20190730
  Transmission Date: 20191004
  Serious: Yes (Death, Life-Threatening)
  Sender: FDA-Public Use
  Company Number: JP-BEH-2018095504

PATIENT
  Age: 31 Year
  Sex: Male
  Weight: 72.3 kg

DRUGS (20)
  1. BERIPLEX P/N [Suspect]
     Active Substance: COAGULATION FACTOR IX HUMAN\COAGULATION FACTOR VII HUMAN\COAGULATION FACTOR X HUMAN\PROTEIN C\PROTEIN S HUMAN\PROTHROMBIN
     Indication: EMERGENCY CARE
     Dosage: 1000 IU, TOT
     Route: 042
     Dates: start: 20180120
  2. BERIPLEX P/N [Suspect]
     Active Substance: COAGULATION FACTOR IX HUMAN\COAGULATION FACTOR VII HUMAN\COAGULATION FACTOR X HUMAN\PROTEIN C\PROTEIN S HUMAN\PROTHROMBIN
     Indication: SURGERY
  3. HANP [Concomitant]
     Active Substance: CARPERITIDE
     Indication: INTRAOPERATIVE CARE
     Dosage: UNK
     Route: 065
     Dates: start: 20180120, end: 20180120
  4. WARFARIN [Concomitant]
     Active Substance: WARFARIN
     Indication: PROPHYLAXIS
  5. BOSMIN                             /00003901/ [Concomitant]
     Active Substance: EPINEPHRINE
     Dosage: UNK
     Route: 065
     Dates: start: 20180123, end: 20180202
  6. URSODEOXYCHOLIC ACID [Concomitant]
     Active Substance: URSODIOL
     Dosage: UNK
     Route: 048
     Dates: start: 20180123, end: 20180124
  7. E KEPPRA [Concomitant]
     Active Substance: LEVETIRACETAM
     Dosage: UNK
     Route: 042
     Dates: start: 20180125, end: 20180128
  8. DOPAMINE [Concomitant]
     Active Substance: DOPAMINE HYDROCHLORIDE
     Indication: POSTOPERATIVE CARE
  9. HANP [Concomitant]
     Active Substance: CARPERITIDE
     Indication: POSTOPERATIVE CARE
     Dosage: UNK
     Route: 065
     Dates: start: 20180123, end: 20180125
  10. NITRIC OXIDE. [Concomitant]
     Active Substance: NITRIC OXIDE
     Route: 065
  11. WARFARIN [Concomitant]
     Active Substance: WARFARIN
     Indication: VENTRICULAR ASSIST DEVICE INSERTION
     Dosage: 1.75 MG, QD
     Route: 048
     Dates: start: 20151231, end: 20180119
  12. DOBUTAMINE [Concomitant]
     Active Substance: DOBUTAMINE HYDROCHLORIDE
     Dosage: UNK
     Route: 065
     Dates: end: 20180121
  13. SAMSCA [Concomitant]
     Active Substance: TOLVAPTAN
     Dosage: UNK
     Route: 048
     Dates: end: 20180120
  14. BERIPLEX P/N [Suspect]
     Active Substance: COAGULATION FACTOR IX HUMAN\COAGULATION FACTOR VII HUMAN\COAGULATION FACTOR X HUMAN\PROTEIN C\PROTEIN S HUMAN\PROTHROMBIN
     Indication: SURGERY
  15. NORADRENALINE                      /00127501/ [Concomitant]
     Active Substance: NOREPINEPHRINE
     Dosage: UNK
     Route: 065
     Dates: end: 20180202
  16. DOPAMINE [Concomitant]
     Active Substance: DOPAMINE HYDROCHLORIDE
     Indication: INTRAOPERATIVE CARE
     Dosage: UNK
     Route: 065
     Dates: start: 20180120, end: 20180202
  17. BAYASPIRIN [Concomitant]
     Active Substance: ASPIRIN
     Dosage: UNK
     Route: 048
     Dates: end: 20180119
  18. BERIPLEX P/N [Suspect]
     Active Substance: COAGULATION FACTOR IX HUMAN\COAGULATION FACTOR VII HUMAN\COAGULATION FACTOR X HUMAN\PROTEIN C\PROTEIN S HUMAN\PROTHROMBIN
     Indication: EMERGENCY CARE
     Dosage: 1000 IU, TOT
     Route: 042
     Dates: start: 20180120
  19. LASIX [Concomitant]
     Active Substance: FUROSEMIDE
     Dosage: UNK
     Route: 065
     Dates: end: 20180126
  20. URSODEOXYCHOLIC ACID [Concomitant]
     Active Substance: URSODIOL
     Dosage: UNK
     Route: 048
     Dates: end: 20180119

REACTIONS (8)
  - Ejection fraction decreased [Recovered/Resolved]
  - Mydriasis [Fatal]
  - Haemorrhage [Unknown]
  - Graft complication [Recovered/Resolved]
  - Subdural haematoma [Fatal]
  - Thrombosis in device [Recovered/Resolved]
  - Aneurysm [Unknown]
  - Blood pressure decreased [Fatal]

NARRATIVE: CASE EVENT DATE: 20180120
